FAERS Safety Report 9999657 (Version 2)
Quarter: 2014Q2

REPORT INFORMATION
  Report Type: Spontaneous
  Country: JP (occurrence: JP)
  Receive Date: 20140312
  Receipt Date: 20140424
  Transmission Date: 20141212
  Serious: Yes (Other)
  Sender: FDA-Public Use
  Company Number: JP-SA-2014SA029930

PATIENT
  Age: 65 Year
  Sex: Male

DRUGS (4)
  1. CYCLOPHOSPHAMIDE [Suspect]
     Indication: BONE MARROW CONDITIONING REGIMEN
     Dosage: FOR 2 DAYS
     Route: 065
     Dates: start: 201112, end: 201112
  2. FLUDARABINE PHOSPHATE [Suspect]
     Indication: BONE MARROW CONDITIONING REGIMEN
     Dosage: DOSE :25 MG/MM FOR FOUR DAYS
     Route: 065
     Dates: start: 201112, end: 201112
  3. BUSULFAN [Suspect]
     Indication: BONE MARROW CONDITIONING REGIMEN
     Dosage: DOSE OF IV BU 3.2 MG/MM FOR 4 DAYS
     Route: 042
     Dates: start: 201112, end: 201112
  4. ACICLOVIR [Concomitant]
     Indication: PROPHYLAXIS
     Route: 048

REACTIONS (4)
  - Memory impairment [Not Recovered/Not Resolved]
  - Speech disorder [Not Recovered/Not Resolved]
  - Herpes simplex encephalitis [Recovered/Resolved]
  - Altered state of consciousness [Recovering/Resolving]
